FAERS Safety Report 17307215 (Version 1)
Quarter: 2020Q1

REPORT INFORMATION
  Report Type: Spontaneous
  Country: US (occurrence: US)
  Receive Date: 20200122
  Receipt Date: 20200122
  Transmission Date: 20200409
  Serious: Yes (Other)
  Sender: FDA-Public Use
  Company Number: None

PATIENT
  Age: 55 Year
  Sex: Female
  Weight: 117 kg

DRUGS (9)
  1. ASPIRIN. [Concomitant]
     Active Substance: ASPIRIN
  2. LOSARTEN [Concomitant]
     Active Substance: LOSARTAN
  3. PLAVIX [Concomitant]
     Active Substance: CLOPIDOGREL BISULFATE
  4. MULTI VITAMIN [Concomitant]
     Active Substance: VITAMINS
  5. BISORPROLOL [Concomitant]
  6. CHOLESTYRAMINE FOR ORAL SUSPENSION POWDER [Suspect]
     Active Substance: CHOLESTYRAMINE
     Indication: BILIARY TRACT DISORDER
     Dosage: ?          QUANTITY:1 SCOOP;?
     Route: 048
     Dates: start: 20191115, end: 20191118
  7. MAGNESIUM OXIDE. [Concomitant]
     Active Substance: MAGNESIUM OXIDE
  8. PRILOSEC [Concomitant]
     Active Substance: OMEPRAZOLE MAGNESIUM
  9. ZOLOFT [Concomitant]
     Active Substance: SERTRALINE HYDROCHLORIDE

REACTIONS (3)
  - Choking [None]
  - Product substitution error [None]
  - Suffocation feeling [None]

NARRATIVE: CASE EVENT DATE: 20191115
